FAERS Safety Report 22024193 (Version 1)
Quarter: 2023Q1

REPORT INFORMATION
  Report Type: Spontaneous
  Country: US (occurrence: US)
  Receive Date: 20230223
  Receipt Date: 20230223
  Transmission Date: 20230417
  Serious: Yes (Death, Other)
  Sender: FDA-Public Use
  Company Number: US-SUN PHARMACEUTICAL INDUSTRIES LTD-2023R1-379756

PATIENT
  Age: 14 Year
  Sex: Female

DRUGS (4)
  1. AMPHOTERICIN B [Suspect]
     Active Substance: AMPHOTERICIN B
     Indication: Scedosporium infection
     Dosage: UNK
     Route: 065
  2. GRANULOCYTE COLONY-STIMULATING FACTOR NOS [Suspect]
     Active Substance: GRANULOCYTE COLONY-STIMULATING FACTOR NOS
     Indication: Scedosporium infection
     Dosage: UNK
     Route: 065
  3. TERBINAFINE [Suspect]
     Active Substance: TERBINAFINE
     Indication: Scedosporium infection
     Dosage: UNK
     Route: 065
  4. POSACONAZOLE [Suspect]
     Active Substance: POSACONAZOLE
     Indication: Scedosporium infection
     Dosage: UNK
     Route: 042

REACTIONS (3)
  - Therapy non-responder [Fatal]
  - Multiple organ dysfunction syndrome [Fatal]
  - Hypertransaminasaemia [Unknown]
